FAERS Safety Report 7731666-6 (Version None)
Quarter: 2011Q3

REPORT INFORMATION
  Report Type: 
  Country: None (occurrence: None)
  Receive Date: 20110906
  Receipt Date: 20110831
  Transmission Date: 20111222
  Serious: Yes (Other)
  Sender: FDA-Public Use
  Company Number: CH-PFIZER INC-2011202860

PATIENT
  Age: 68 Year
  Sex: Male
  Weight: 106 kg

DRUGS (9)
  1. TORSEMIDE [Suspect]
     Dosage: 20 MG IN THE MORNING AND 10 MG IN THE EVENING
     Route: 048
     Dates: start: 20110314, end: 20110318
  2. KALIUMCHLORID ^BRAUN^ [Concomitant]
     Dosage: 40 MMOL, 1X/DAY
     Route: 041
     Dates: start: 20110314
  3. MARCOUMAR [Concomitant]
     Dosage: 3 MG, AS NEEDED (ACCORDING TO INR)
     Route: 048
  4. PULMICORT [Concomitant]
     Dosage: 200 UG, 2X/DAY
     Route: 048
  5. SILDENAFIL CITRATE [Suspect]
     Indication: COR PULMONALE ACUTE
     Dosage: 25 MG, 3X/DAY
     Route: 048
     Dates: start: 20110314, end: 20110316
  6. ADALAT [Concomitant]
     Dosage: 20 MG, 1X/DAY
     Route: 048
  7. OXIS TURBUHALER ^ASTRA ZENECA^ [Concomitant]
     Dosage: 1 DF, 2X/DAY
     Route: 055
  8. RENITEN MITE RPD [Concomitant]
     Dosage: 10 MG, 2X/DAY
     Route: 048
  9. PRAVASTATIN [Concomitant]
     Dosage: 40 MG, 1X/DAY
     Route: 048

REACTIONS (3)
  - RASH [None]
  - HYPERSENSITIVITY [None]
  - PRURITUS [None]
